FAERS Safety Report 12188041 (Version 1)
Quarter: 2016Q1

REPORT INFORMATION
  Report Type: Spontaneous
  Country: US (occurrence: US)
  Receive Date: 20160317
  Receipt Date: 20160317
  Transmission Date: 20160526
  Serious: Yes (Other)
  Sender: FDA-Public Use
  Company Number: US-BEH-2016060015

PATIENT
  Age: 52 Year
  Sex: Female
  Weight: 76 kg

DRUGS (16)
  1. LMX [Concomitant]
     Active Substance: LIDOCAINE
  2. SINGULAIR [Concomitant]
     Active Substance: MONTELUKAST SODIUM
  3. ALLEGRA [Concomitant]
     Active Substance: FEXOFENADINE HYDROCHLORIDE
  4. BLACK COHOSH [Concomitant]
     Active Substance: BLACK COHOSH
  5. PREMARIN [Concomitant]
     Active Substance: ESTROGENS, CONJUGATED
  6. HIZENTRA [Suspect]
     Active Substance: HUMAN IMMUNOGLOBULIN G
     Indication: RHINITIS ALLERGIC
     Route: 058
  7. CUBICIN [Concomitant]
     Active Substance: DAPTOMYCIN
  8. ACETAMINOPHEN. [Concomitant]
     Active Substance: ACETAMINOPHEN
  9. DIPHENHYDRAMINE. [Concomitant]
     Active Substance: DIPHENHYDRAMINE
  10. EPIPEN [Concomitant]
     Active Substance: EPINEPHRINE
  11. ADVAIR HFA [Concomitant]
     Active Substance: FLUTICASONE PROPIONATE\SALMETEROL XINAFOATE
  12. PROAIR HFA [Concomitant]
     Active Substance: ALBUTEROL SULFATE
  13. CYMBALTA [Concomitant]
     Active Substance: DULOXETINE HYDROCHLORIDE
  14. HIZENTRA [Suspect]
     Active Substance: HUMAN IMMUNOGLOBULIN G
     Indication: IMMUNODEFICIENCY COMMON VARIABLE
     Route: 058
  15. NASACORT [Concomitant]
     Active Substance: TRIAMCINOLONE ACETONIDE
  16. THYROID [Concomitant]
     Active Substance: LEVOTHYROXINE\LIOTHYRONINE

REACTIONS (2)
  - Respiratory tract infection [Unknown]
  - Influenza [Unknown]

NARRATIVE: CASE EVENT DATE: 20160203
